FAERS Safety Report 5952808-9 (Version None)
Quarter: 2008Q4

REPORT INFORMATION
  Report Type: 
  Country: None (occurrence: None)
  Receive Date: 20081114
  Receipt Date: 20081111
  Transmission Date: 20090506
  Serious: Yes (Hospitalization, Other)
  Sender: FDA-Public Use
  Company Number: CH-WYE-G02283108

PATIENT
  Age: 29 Year
  Sex: Female
  Weight: 62 kg

DRUGS (2)
  1. EFFEXOR [Suspect]
     Indication: DEPRESSION
     Route: 048
     Dates: start: 20080115
  2. IRON [Concomitant]

REACTIONS (2)
  - DRUG EXPOSURE DURING PREGNANCY [None]
  - INTRA-UTERINE DEATH [None]
